FAERS Safety Report 11422700 (Version 2)
Quarter: 2015Q3

REPORT INFORMATION
  Report Type: Report from Study
  Country: IL (occurrence: IL)
  Receive Date: 20150827
  Receipt Date: 20150831
  Transmission Date: 20151125
  Serious: Yes (Hospitalization)
  Sender: FDA-Public Use
  Company Number: PHHY2015IL103140

PATIENT
  Age: 44 Year
  Sex: Male

DRUGS (1)
  1. GILENYA [Suspect]
     Active Substance: FINGOLIMOD HYDROCHLORIDE
     Indication: MULTIPLE SCLEROSIS
     Dosage: 0.5 MG, QD
     Route: 048
     Dates: start: 20150427

REACTIONS (3)
  - Constipation [Not Recovered/Not Resolved]
  - Multiple sclerosis relapse [Unknown]
  - Anuria [Not Recovered/Not Resolved]

NARRATIVE: CASE EVENT DATE: 20150822
